FAERS Safety Report 4660918-1 (Version None)
Quarter: 2005Q2

REPORT INFORMATION
  Report Type: 
  Country: None (occurrence: None)
  Receive Date: 20050511
  Receipt Date: 20050427
  Transmission Date: 20051028
  Serious: Yes (Other)
  Sender: FDA-Public Use
  Company Number: SUS1-2004-00519

PATIENT
  Age: 43 Year
  Sex: Female
  Weight: 88.4 kg

DRUGS (2)
  1. PENTASA [Suspect]
     Indication: CROHN'S DISEASE
     Dosage: SEE IMAGE, ORAL
     Route: 048
     Dates: start: 20030501, end: 20040101
  2. PENTASA [Suspect]
     Indication: CROHN'S DISEASE
     Dosage: SEE IMAGE, ORAL
     Route: 048
     Dates: start: 20040101

REACTIONS (1)
  - RETINAL HAEMORRHAGE [None]
